FAERS Safety Report 8398713-2 (Version None)
Quarter: 2012Q2

REPORT INFORMATION
  Report Type: 
  Country: None (occurrence: None)
  Receive Date: 20120524
  Receipt Date: 20120514
  Transmission Date: 20120825
  Serious: Yes (Other)
  Sender: FDA-Public Use
  Company Number: 2012SP019362

PATIENT
  Age: 47 Year
  Sex: Male

DRUGS (5)
  1. PEGASYS [Suspect]
     Indication: HEPATITIS C
     Dosage: 180 MCG; 90 MCG; 135 MCG
     Dates: start: 20111215, end: 20120216
  2. PEGASYS [Suspect]
     Indication: HEPATITIS C
     Dosage: 180 MCG; 90 MCG; 135 MCG
     Dates: start: 20120302
  3. PEGASYS [Suspect]
     Indication: HEPATITIS C
     Dosage: 180 MCG; 90 MCG; 135 MCG
     Dates: start: 20120217, end: 20120301
  4. COPEGUS [Suspect]
     Indication: HEPATITIS C
     Dosage: 1200 MG
     Dates: start: 20111215
  5. VICTRELIS [Suspect]
     Indication: HEPATITIS C
     Dosage: 800 MG; TID; PO
     Route: 048
     Dates: start: 20120114

REACTIONS (5)
  - AGGRESSION [None]
  - PRURITUS [None]
  - ERYTHEMA [None]
  - LEUKOPENIA [None]
  - DEPRESSION [None]
